FAERS Safety Report 7765690-4 (Version None)
Quarter: 2011Q3

REPORT INFORMATION
  Report Type: 
  Country: None (occurrence: None)
  Receive Date: 20110921
  Receipt Date: 20110909
  Transmission Date: 20111222
  Serious: Yes (Other)
  Sender: FDA-Public Use
  Company Number: CA-CELGENEUS-028-21880-11091373

PATIENT
  Sex: Male
  Weight: 107.9 kg

DRUGS (4)
  1. ASPIRIN [Concomitant]
     Dosage: 81 MILLIGRAM
     Route: 048
  2. DOXAZOSIN MESYLATE [Concomitant]
     Route: 065
  3. CRESTOR [Concomitant]
     Route: 065
  4. REVLIMID [Suspect]
     Dosage: 15 MILLIGRAM
     Route: 048
     Dates: start: 20070402

REACTIONS (1)
  - SQUAMOUS CELL CARCINOMA OF SKIN [None]
